FAERS Safety Report 8276703-8 (Version None)
Quarter: 2012Q2

REPORT INFORMATION
  Report Type: 
  Country: None (occurrence: None)
  Receive Date: 20120412
  Receipt Date: 20120412
  Transmission Date: 20120825
  Serious: Yes (Hospitalization)
  Sender: FDA-Public Use
  Company Number: None

PATIENT
  Age: 43 Year
  Sex: Female
  Weight: 71 kg

DRUGS (8)
  1. HYDROMORPHONE ER [Concomitant]
     Route: 048
  2. HYDROMORPHONE HCL [Concomitant]
     Route: 048
  3. CYCLOBENAZPRINE [Concomitant]
     Route: 048
  4. CITALOPRAM HYDROBROMIDE [Concomitant]
     Route: 048
  5. METOCLOPRAMIDE [Suspect]
     Indication: GASTROINTESTINAL MOTILITY DISORDER
     Dosage: UNKNOWN
     Route: 048
  6. ESOMEPRAZOLE MAGNESIUM [Concomitant]
     Route: 048
  7. ECZOPICLONE [Concomitant]
  8. ETODOLAC [Concomitant]
     Route: 048

REACTIONS (2)
  - DYSTONIA [None]
  - TREMOR [None]
